FAERS Safety Report 5113197-5 (Version None)
Quarter: 2006Q3

REPORT INFORMATION
  Report Type: 
  Country: None (occurrence: None)
  Receive Date: 20060920
  Receipt Date: 20060901
  Transmission Date: 20061208
  Serious: Yes (Hospitalization)
  Sender: FDA-Public Use
  Company Number: US200609000796

PATIENT
  Age: 77 Year
  Sex: Female

DRUGS (2)
  1. FORTEO [Suspect]
     Indication: OSTEOPOROSIS
     Dates: start: 20060101, end: 20060101
  2. FORTEO PEN (FORTEO PEN) PEN, DISPOSABLE [Concomitant]

REACTIONS (4)
  - CARDIAC FAILURE CONGESTIVE [None]
  - DRUG INTERACTION [None]
  - PNEUMONIA [None]
  - RENAL FAILURE [None]
